FAERS Safety Report 4820905-7 (Version None)
Quarter: 2005Q4

REPORT INFORMATION
  Report Type: 
  Country: None (occurrence: None)
  Receive Date: 20051104
  Receipt Date: 20051027
  Transmission Date: 20060501
  Serious: Yes (Other)
  Sender: FDA-Public Use
  Company Number: US-AVENTIS-200518741US

PATIENT
  Age: 52 Year
  Sex: Male
  Weight: 84 kg

DRUGS (11)
  1. LOVENOX [Suspect]
     Dates: end: 20051020
  2. LOVENOX [Suspect]
     Dates: start: 20051021, end: 20051023
  3. ASPIRIN [Concomitant]
  4. AMBIEN [Concomitant]
     Dosage: DOSE: NOT PROVIDED
  5. ATIVAN [Concomitant]
     Dosage: DOSE: NOT PROVIDED
  6. COLACE [Concomitant]
     Dosage: DOSE: NOT PROVIDED
  7. FERROUS SULFATE TAB [Concomitant]
     Dosage: DOSE: NOT PROVIDED
  8. LORTAB [Concomitant]
     Dosage: DOSE: NOT PROVIDED
  9. MORPHINE [Concomitant]
     Dosage: DOSE: NOT REPORTED
  10. PEPCID [Concomitant]
     Dosage: DOSE: NOT PROVIDED
  11. ZOFRAN [Concomitant]
     Dosage: DOSE: NOT PROVIDED

REACTIONS (2)
  - HAEMATOCRIT DECREASED [None]
  - HAEMOGLOBIN DECREASED [None]
